FAERS Safety Report 24825005 (Version 1)
Quarter: 2025Q1

REPORT INFORMATION
  Report Type: Report from Study
  Country: US (occurrence: US)
  Receive Date: 20250109
  Receipt Date: 20250109
  Transmission Date: 20250408
  Serious: Yes (Other)
  Sender: CSL BEHRING
  Company Number: US-BEH-2024187130

PATIENT
  Age: 28 Year
  Sex: Female

DRUGS (1)
  1. HIZENTRA [Suspect]
     Active Substance: HUMAN IMMUNOGLOBULIN G
     Route: 065

REACTIONS (8)
  - Sinusitis [Unknown]
  - Pneumonia [Unknown]
  - Influenza like illness [Unknown]
  - Pain [Unknown]
  - Nausea [Unknown]
  - Headache [Unknown]
  - Feeling cold [Unknown]
  - Fatigue [Unknown]

NARRATIVE: CASE EVENT DATE: 20241129
